FAERS Safety Report 7031052-0 (Version None)
Quarter: 2010Q4

REPORT INFORMATION
  Report Type: 
  Country: None (occurrence: None)
  Receive Date: 20101006
  Receipt Date: 20100920
  Transmission Date: 20110411
  Serious: Yes (Hospitalization)
  Sender: FDA-Public Use
  Company Number: US-WYE-H17610710

PATIENT
  Sex: Female
  Weight: 39 kg

DRUGS (16)
  1. RELISTOR [Suspect]
     Indication: CONSTIPATION
     Route: 058
     Dates: start: 20100910, end: 20100916
  2. RELISTOR [Suspect]
     Route: 058
     Dates: start: 20100917
  3. CELEBREX [Concomitant]
     Dosage: UNSPECIFIED
     Route: 065
  4. ELAVIL [Concomitant]
     Dosage: UNSPECIFIED
     Route: 065
  5. DEXAMETHASONE [Concomitant]
     Dosage: UNSPECIFIED
     Route: 065
  6. MS CONTIN [Concomitant]
     Dosage: UNSPECIFIED
     Route: 065
  7. ROXANOL [Concomitant]
     Dosage: UNSPECIFIED
     Route: 065
  8. MIRALAX [Concomitant]
     Dosage: UNSPECIFIED
     Route: 065
  9. LACTULOSE [Concomitant]
     Dosage: UNSPECIFIED
     Route: 065
  10. TYLENOL-500 [Concomitant]
     Dosage: UNSPECIFIED
     Route: 065
  11. XANAX [Concomitant]
     Dosage: UNSPECIFIED
     Route: 065
  12. AMLODIPINE [Concomitant]
     Dosage: UNSPECIFIED
     Route: 065
  13. PRILOSEC [Concomitant]
     Dosage: UNSPECIFIED
     Route: 065
  14. DOCUSATE SODIUM [Concomitant]
     Indication: CONSTIPATION
     Dosage: UNSPECIFIED
     Route: 065
  15. DILAUDID [Concomitant]
     Dosage: DRIP - UNSPECIFIED DOSAGE
     Route: 008
  16. REMERON [Concomitant]
     Route: 065

REACTIONS (1)
  - FAECALOMA [None]
